FAERS Safety Report 21740905 (Version 1)
Quarter: 2022Q4

REPORT INFORMATION
  Report Type: Spontaneous
  Country: NO (occurrence: NO)
  Receive Date: 20221216
  Receipt Date: 20221216
  Transmission Date: 20230113
  Serious: Yes (Hospitalization)
  Sender: FDA-Public Use
  Company Number: NO-MLMSERVICE-20221201-3955115-1

PATIENT
  Sex: Female

DRUGS (3)
  1. SINEMET [Suspect]
     Active Substance: CARBIDOPA\LEVODOPA
     Indication: Parkinson^s disease
     Dosage: 10 TIMES DAILY
     Route: 048
  2. TOLCAPONE [Concomitant]
     Active Substance: TOLCAPONE
     Indication: Dystonia
     Dosage: 100 MG 3 TIMES DAILY
  3. BOTULINUM TOXIN NOS [Concomitant]
     Active Substance: BOTULINUM TOXIN NOS
     Indication: Dystonia
     Dosage: UNK

REACTIONS (1)
  - Vitamin B6 deficiency [Recovering/Resolving]
